FAERS Safety Report 23558232 (Version 1)
Quarter: 2024Q1

REPORT INFORMATION
  Report Type: Spontaneous
  Country: US (occurrence: US)
  Receive Date: 20240223
  Receipt Date: 20240223
  Transmission Date: 20240410
  Serious: Yes (Other)
  Sender: FDA-Public Use
  Company Number: US-RECKITT BENCKISER HEALTHCARE INT LIMITED-RB-083251-2024

PATIENT
  Age: 71 Year
  Sex: Female
  Weight: 72.27 kg

DRUGS (2)
  1. CLEARASIL RAPID RESCUE SPOT TREATMENT NOS [Suspect]
     Active Substance: BENZOYL PEROXIDE OR SALICYLIC ACID
     Indication: Acne
     Dosage: UNK
     Route: 065
     Dates: start: 20240124
  2. LEVOTHYROXINE [Concomitant]
     Active Substance: LEVOTHYROXINE\LEVOTHYROXINE SODIUM
     Indication: Product used for unknown indication
     Dosage: UNK
     Route: 065

REACTIONS (7)
  - Pericardial effusion [Recovering/Resolving]
  - Urticaria [Recovering/Resolving]
  - Dyspnoea [Recovering/Resolving]
  - Erythema [Recovering/Resolving]
  - Chest pain [Recovering/Resolving]
  - Swelling face [Recovering/Resolving]
  - Eye swelling [Recovering/Resolving]

NARRATIVE: CASE EVENT DATE: 20240124
